FAERS Safety Report 6707493-5 (Version None)
Quarter: 2010Q2

REPORT INFORMATION
  Report Type: 
  Country: None (occurrence: None)
  Receive Date: 20100429
  Receipt Date: 20100416
  Transmission Date: 20101027
  Serious: Yes (Death, Hospitalization, Other)
  Sender: FDA-Public Use
  Company Number: MPS1-1000321

PATIENT
  Age: 11 Year
  Sex: Female

DRUGS (2)
  1. ALDURAZYME [Suspect]
     Indication: MUCOPOLYSACCHARIDOSIS I
     Dosage: 0.58 MG/KG, QOW, INTRAVENOUS ; 1.16 MG/KG, QOW, INTRAVENOUS
     Route: 042
     Dates: start: 20050413, end: 20091231
  2. ALDURAZYME [Suspect]
     Indication: MUCOPOLYSACCHARIDOSIS I
     Dosage: 0.58 MG/KG, QOW, INTRAVENOUS ; 1.16 MG/KG, QOW, INTRAVENOUS
     Route: 042
     Dates: end: 20100405

REACTIONS (5)
  - FATIGUE [None]
  - PALLOR [None]
  - RESPIRATORY FAILURE [None]
  - UMBILICAL HERNIA [None]
  - UPPER RESPIRATORY TRACT INFECTION [None]
